FAERS Safety Report 9661887 (Version 4)
Quarter: 2014Q1

REPORT INFORMATION
  Report Type: Spontaneous
  Country: HK (occurrence: None)
  Receive Date: 20131030
  Receipt Date: 20140326
  Transmission Date: 20141002
  Serious: Yes (Hospitalization)
  Sender: FDA-Public Use
  Company Number: 2013HK002736

PATIENT
  Age: 69 Year
  Sex: Male

DRUGS (3)
  1. PONATINIB [Suspect]
     Indication: CHRONIC MYELOID LEUKAEMIA
     Route: 048
     Dates: start: 20130904, end: 20130910
  2. ALLOPURINOL (ALLOPURINOL) [Concomitant]
  3. TRANEXAMIC ACID (TRANEXAMIC ACID) [Concomitant]

REACTIONS (4)
  - Periorbital contusion [None]
  - Platelet count decreased [None]
  - Face injury [None]
  - Anaemia [None]
